FAERS Safety Report 7793902-X (Version None)
Quarter: 2011Q4

REPORT INFORMATION
  Report Type: 
  Country: None (occurrence: None)
  Receive Date: 20111004
  Receipt Date: 20110923
  Transmission Date: 20120403
  Serious: No
  Sender: FDA-Public Use
  Company Number: US-BIOGENIDEC-2011BI013408

PATIENT
  Age: 29 Year
  Sex: Female

DRUGS (1)
  1. TYSABRI [Suspect]
     Indication: MULTIPLE SCLEROSIS
     Route: 042
     Dates: start: 20110304

REACTIONS (8)
  - FATIGUE [None]
  - CENTRAL NERVOUS SYSTEM LESION [None]
  - TREMOR [None]
  - STRESS [None]
  - CENTRAL NERVOUS SYSTEM INFLAMMATION [None]
  - BALANCE DISORDER [None]
  - HYPOAESTHESIA [None]
  - FALL [None]
